FAERS Safety Report 8349958-9 (Version None)
Quarter: 2012Q2

REPORT INFORMATION
  Report Type: 
  Country: None (occurrence: None)
  Receive Date: 20120510
  Receipt Date: 20120426
  Transmission Date: 20120825
  Serious: No
  Sender: FDA-Public Use
  Company Number: CA-US-EMD SERONO, INC.-7124822

PATIENT
  Sex: Female

DRUGS (2)
  1. REBIF [Suspect]
     Indication: PRODUCT USED FOR UNKNOWN INDICATION
     Dosage: MULTIDOSE
     Route: 058
     Dates: start: 20050304
  2. REBIF [Suspect]
     Route: 058
     Dates: start: 20120426

REACTIONS (2)
  - MULTIPLE SCLEROSIS RELAPSE [None]
  - ABDOMINAL PAIN UPPER [None]
